FAERS Safety Report 6626499-8 (Version None)
Quarter: 2010Q1

REPORT INFORMATION
  Report Type: 
  Country: None (occurrence: None)
  Receive Date: 20100309
  Receipt Date: 20100309
  Transmission Date: 20100710
  Serious: Yes (Other)
  Sender: FDA-Public Use
  Company Number: None

PATIENT
  Age: 45 Year
  Sex: Female
  Weight: 63.5036 kg

DRUGS (1)
  1. CIPROFLOXACIN 500MG [Suspect]
     Indication: SINUSITIS
     Dosage: 500MG TWICE/DAY PO
     Route: 048
     Dates: start: 20100227, end: 20100306

REACTIONS (12)
  - ABDOMINAL PAIN LOWER [None]
  - ANGINA PECTORIS [None]
  - ANXIETY [None]
  - CARDIAC FLUTTER [None]
  - DYSPNOEA [None]
  - FEELING ABNORMAL [None]
  - LYMPHADENOPATHY [None]
  - PARAESTHESIA [None]
  - PHARYNGITIS STREPTOCOCCAL [None]
  - PRURITUS [None]
  - RASH ERYTHEMATOUS [None]
  - URTICARIA [None]
